FAERS Safety Report 15003248 (Version 1)
Quarter: 2018Q2

REPORT INFORMATION
  Report Type: Spontaneous
  Country: US (occurrence: US)
  Receive Date: 20180613
  Receipt Date: 20180613
  Transmission Date: 20180711
  Serious: Yes (Hospitalization, Other)
  Sender: FDA-Public Use
  Company Number: US-MICRO LABS LIMITED-BB2018-01143

PATIENT
  Age: 81 Year
  Sex: Male

DRUGS (7)
  1. ELIQUIS [Suspect]
     Active Substance: APIXABAN
     Indication: ATRIAL FIBRILLATION
     Dosage: 2.5 MG, BID
  2. METOPROLOL. [Suspect]
     Active Substance: METOPROLOL
  3. ASPIRIN. [Suspect]
     Active Substance: ASPIRIN
     Route: 048
  4. FINASTERIDE. [Suspect]
     Active Substance: FINASTERIDE
     Route: 048
  5. DOXAZOSIN [Suspect]
     Active Substance: DOXAZOSIN\DOXAZOSIN MESYLATE
  6. SIMVASTATIN. [Suspect]
     Active Substance: SIMVASTATIN
     Route: 048
  7. BUPROPION. [Suspect]
     Active Substance: BUPROPION

REACTIONS (9)
  - Syncope [Unknown]
  - Anxiety [Unknown]
  - Atrial fibrillation [Unknown]
  - Benign prostatic hyperplasia [Unknown]
  - Stent placement [Unknown]
  - Haemorrhage intracranial [Unknown]
  - Percutaneous coronary intervention [Unknown]
  - Subarachnoid haemorrhage [Unknown]
  - Craniotomy [Unknown]
